FAERS Safety Report 10062842 (Version 1)
Quarter: 2014Q1

REPORT INFORMATION
  Report Type: Spontaneous
  Country: US (occurrence: None)
  Receive Date: 20140328
  Receipt Date: 20140328
  Transmission Date: 20141002
  Serious: No
  Sender: FDA-Public Use
  Company Number: CABO-14004001

PATIENT
  Age: 33 Year
  Sex: Male

DRUGS (1)
  1. COMETRIQ (CABOZANTINIB) CAPSULE [Suspect]
     Indication: RENAL CANCER
     Route: 048
     Dates: start: 20140114

REACTIONS (7)
  - Faeces pale [None]
  - Oral pain [None]
  - Dysgeusia [None]
  - Pain in extremity [None]
  - Hair colour changes [None]
  - Fatigue [None]
  - Off label use [None]
